FAERS Safety Report 6368570-4 (Version None)
Quarter: 2009Q3

REPORT INFORMATION
  Report Type: 
  Country: None (occurrence: None)
  Receive Date: 20090922
  Receipt Date: 20090105
  Transmission Date: 20100115
  Serious: No
  Sender: FDA-Public Use
  Company Number: US-BRISTOL-MYERS SQUIBB COMPANY-14460943

PATIENT
  Age: 64 Year
  Sex: Male

DRUGS (3)
  1. BUSPIRONE HCL TABS [Suspect]
     Indication: ANXIETY
     Route: 048
  2. NIASPAN [Interacting]
     Indication: BLOOD CHOLESTEROL INCREASED
     Dosage: NIASPAN COATED EXTENDED RELEASE STARTED AT 500 MG:JUN08 INCREASED TO 1000MG AFTER 2 WEEKS
     Route: 048
     Dates: start: 20080601
  3. ACETYLSALICYLIC ACID [Concomitant]
     Dosage: TAKEN WITH NIASPAN.
     Route: 048

REACTIONS (3)
  - DRUG INTERACTION [None]
  - FEELING ABNORMAL [None]
  - FLUSHING [None]
